FAERS Safety Report 18574979 (Version 2)
Quarter: 2021Q1

REPORT INFORMATION
  Report Type: Spontaneous
  Country: SV (occurrence: SV)
  Receive Date: 20201203
  Receipt Date: 20210310
  Transmission Date: 20210419
  Serious: Yes (Death, Hospitalization)
  Sender: FDA-Public Use
  Company Number: NVSC2020SV316958

PATIENT
  Age: 6 Year
  Sex: Male

DRUGS (1)
  1. GLIVEC [Suspect]
     Active Substance: IMATINIB MESYLATE
     Indication: CHRONIC MYELOID LEUKAEMIA
     Dosage: 300 MG (3 X 100 MG)
     Route: 065

REACTIONS (8)
  - Seizure [Unknown]
  - Emotional distress [Unknown]
  - Oral discomfort [Unknown]
  - Pain in extremity [Unknown]
  - Incorrect dose administered [Unknown]
  - Death [Fatal]
  - Metastases to central nervous system [Unknown]
  - Platelet count decreased [Unknown]

NARRATIVE: CASE EVENT DATE: 20210301
